FAERS Safety Report 4667853-3 (Version None)
Quarter: 2005Q2

REPORT INFORMATION
  Report Type: 
  Country: None (occurrence: None)
  Receive Date: 20050520
  Receipt Date: 20050520
  Transmission Date: 20051028
  Serious: Yes (Other)
  Sender: FDA-Public Use
  Company Number: None

PATIENT
  Sex: Female

DRUGS (4)
  1. COGENTIN [Suspect]
     Indication: CONVULSION
     Dosage: TAKE 1/2 TABLET TWICE A DAY
     Dates: start: 20050523
  2. LITHIUM [Concomitant]
  3. GEODON [Concomitant]
  4. SEROQUEL [Concomitant]

REACTIONS (1)
  - DYSGEUSIA [None]
